FAERS Safety Report 12561199 (Version 2)
Quarter: 2016Q3

REPORT INFORMATION
  Report Type: Spontaneous
  Country: US (occurrence: US)
  Receive Date: 20160715
  Receipt Date: 20160818
  Transmission Date: 20161109
  Serious: No
  Sender: FDA-Public Use
  Company Number: US-009507513-1607USA006602

PATIENT
  Age: 59 Year
  Sex: Male

DRUGS (7)
  1. PRINIVIL [Suspect]
     Active Substance: LISINOPRIL
     Indication: TYPE 2 DIABETES MELLITUS
  2. GLIPIZIDE. [Suspect]
     Active Substance: GLIPIZIDE
     Indication: DIABETIC NEPHROPATHY
  3. PRINIVIL [Suspect]
     Active Substance: LISINOPRIL
     Indication: DIABETIC NEPHROPATHY
     Dosage: 20 MG, QD
     Route: 048
     Dates: start: 20120629
  4. PRINIVIL [Suspect]
     Active Substance: LISINOPRIL
     Indication: ESSENTIAL HYPERTENSION
  5. ALLOPURINOL. [Suspect]
     Active Substance: ALLOPURINOL
     Indication: GOUT
     Dosage: 300 MG, QD
     Route: 048
     Dates: start: 20120629
  6. GLIPIZIDE. [Suspect]
     Active Substance: GLIPIZIDE
     Indication: TYPE 2 DIABETES MELLITUS
     Dosage: 10 MG, BID
     Route: 048
     Dates: start: 20120629
  7. GLIPIZIDE. [Suspect]
     Active Substance: GLIPIZIDE
     Indication: DIABETIC NEUROPATHY

REACTIONS (1)
  - Product use issue [Unknown]

NARRATIVE: CASE EVENT DATE: 20120629
